FAERS Safety Report 5456651-9 (Version None)
Quarter: 2007Q3

REPORT INFORMATION
  Report Type: 
  Country: None (occurrence: None)
  Receive Date: 20070918
  Receipt Date: 20070906
  Transmission Date: 20080115
  Serious: Yes (Hospitalization)
  Sender: FDA-Public Use
  Company Number: US-ELI_LILLY_AND_COMPANY-US200606002840

PATIENT
  Age: 44 Year
  Sex: Female
  Weight: 72.562 kg

DRUGS (22)
  1. ZYPREXA [Suspect]
     Indication: DEPRESSION
     Dosage: 5 MG, UNKNOWN
     Route: 048
     Dates: start: 19980720, end: 19980818
  2. ZYPREXA [Suspect]
     Route: 048
     Dates: start: 20000822, end: 20000901
  3. ZYPREXA [Suspect]
     Dosage: 7.5 MG, UNKNOWN
     Route: 048
  4. ZYPREXA [Suspect]
     Dosage: 10 MG, UNKNOWN
     Route: 048
  5. ZYPREXA [Suspect]
     Dosage: 20 MG, UNKNOWN
     Route: 048
  6. ZYPREXA [Suspect]
     Dosage: 10 MG, UNKNOWN
     Route: 048
     Dates: start: 20031224
  7. ZYPREXA [Suspect]
     Dosage: 5 MG, UNKNOWN
     Route: 048
     Dates: start: 20040121, end: 20050101
  8. LEXAPRO [Concomitant]
  9. SEROQUEL [Concomitant]
     Dosage: UNK, UNKNOWN
     Dates: start: 20040201
  10. TEGRETOL [Concomitant]
     Dates: start: 19980720, end: 19980818
  11. LITHIUM CARBONATE [Concomitant]
     Dosage: UNK, UNKNOWN
     Dates: start: 19950103
  12. DEPAKOTE [Concomitant]
     Dosage: UNK, UNKNOWN
     Dates: start: 20040201
  13. XANAX [Concomitant]
     Dosage: UNK, UNKNOWN
     Dates: start: 20000301
  14. BUSPAR [Concomitant]
     Dosage: UNK, UNKNOWN
     Dates: start: 19980720
  15. ATIVAN [Concomitant]
     Dosage: UNK, UNKNOWN
     Dates: start: 20000822
  16. PAXIL [Concomitant]
     Dosage: UNK, UNKNOWN
     Dates: start: 19960801
  17. ZOLOFT [Concomitant]
     Dosage: UNK, UNKNOWN
     Dates: start: 19980720
  18. EFFEXOR [Concomitant]
     Dosage: UNK, UNKNOWN
     Dates: start: 20000201
  19. TRAZODONE HCL [Concomitant]
     Dosage: UNK, UNK
     Dates: start: 19960901, end: 19980818
  20. COGENTIN [Concomitant]
     Dates: start: 20050128
  21. HALDOL [Concomitant]
     Dates: start: 20050128
  22. VISTARIL [Concomitant]
     Dates: start: 19950103

REACTIONS (6)
  - BACK INJURY [None]
  - DIABETES MELLITUS [None]
  - HYPERGLYCAEMIA [None]
  - HYPERTENSION [None]
  - PAIN [None]
  - VAGINAL HAEMORRHAGE [None]
